FAERS Safety Report 6053124-X (Version None)
Quarter: 2009Q1

REPORT INFORMATION
  Report Type: 
  Country: None (occurrence: None)
  Receive Date: 20090127
  Receipt Date: 20090117
  Transmission Date: 20090719
  Serious: Yes (Hospitalization)
  Sender: FDA-Public Use
  Company Number: US-ELI_LILLY_AND_COMPANY-US200901003093

PATIENT
  Age: 40 Year
  Sex: Female

DRUGS (6)
  1. PROZAC [Interacting]
     Dosage: UNK, UNKNOWN
     Route: 065
  2. ZYPREXA [Suspect]
     Dosage: 20 MG, UNKNOWN
     Route: 065
  3. ZYPREXA [Suspect]
     Dosage: 10 MG, UNKNOWN
     Route: 065
  4. QUETIAPINE FUMARATE [Concomitant]
     Dosage: 800 UNK, DAILY (1/D)
     Route: 065
  5. QUETIAPINE FUMARATE [Concomitant]
     Dosage: UNK, UNKNOWN
     Route: 065
  6. LITHIUM CARBONATE [Concomitant]
     Dosage: UNK, UNKNOWN
     Route: 065

REACTIONS (3)
  - DELIRIUM [None]
  - DRUG INTERACTION [None]
  - PYREXIA [None]
